FAERS Safety Report 6562977-8 (Version None)
Quarter: 2010Q1

REPORT INFORMATION
  Report Type: 
  Country: None (occurrence: None)
  Receive Date: 20100130
  Receipt Date: 20091203
  Transmission Date: 20100710
  Serious: No
  Sender: FDA-Public Use
  Company Number: US-ABBOTT-09P-163-0612041-00

PATIENT
  Sex: Female
  Weight: 55.388 kg

DRUGS (7)
  1. HUMIRA [Suspect]
     Indication: ARTHRITIS
     Route: 058
     Dates: start: 20090701
  2. PREDNISONE [Concomitant]
     Indication: ARTHRITIS
     Dosage: 5-20MG DAILY
  3. LISINOPRIL AND HYDROCHLOROTHIAZIDE [Concomitant]
     Indication: HYPERTENSION
     Route: 048
  4. MOBIC [Concomitant]
     Indication: ARTHRITIS
     Route: 048
  5. PRILOSEC [Concomitant]
     Indication: DRUG USE FOR UNKNOWN INDICATION
     Route: 048
  6. PENICILLIN [Concomitant]
     Indication: PROPHYLAXIS
  7. PENICILLIN [Concomitant]
     Indication: ARTHRITIS

REACTIONS (2)
  - LYMPHADENOPATHY [None]
  - TENDERNESS [None]
